FAERS Safety Report 26133628 (Version 1)
Quarter: 2025Q4

REPORT INFORMATION
  Report Type: Spontaneous
  Country: CN (occurrence: CN)
  Receive Date: 20251209
  Receipt Date: 20251209
  Transmission Date: 20260117
  Serious: No
  Sender: ALKEM
  Company Number: CN-ALKEM LABORATORIES LIMITED-CN-ALKEM-2025-09386

PATIENT
  Age: 61 Year
  Sex: Male

DRUGS (5)
  1. VANCOMYCIN [Suspect]
     Active Substance: VANCOMYCIN
     Indication: Bacteraemia
     Dosage: 500 MILLIGRAM, TID
     Route: 065
  2. VANCOMYCIN [Suspect]
     Active Substance: VANCOMYCIN
     Indication: Bacteraemia
  3. MEROPENEM [Suspect]
     Active Substance: MEROPENEM
     Indication: Bacteraemia
     Dosage: 1 GRAM, TID
     Route: 065
  4. MEROPENEM [Suspect]
     Active Substance: MEROPENEM
     Indication: Bacteraemia
     Dosage: 1 GRAM, QID
     Route: 065
  5. MEROPENEM [Suspect]
     Active Substance: MEROPENEM
     Indication: Evidence based treatment

REACTIONS (1)
  - Drug ineffective [Unknown]
